FAERS Safety Report 6875341-9 (Version None)
Quarter: 2010Q3

REPORT INFORMATION
  Report Type: 
  Country: None (occurrence: None)
  Receive Date: 20100727
  Receipt Date: 20070702
  Transmission Date: 20110219
  Serious: Yes (Hospitalization, Disabling, Other)
  Sender: FDA-Public Use
  Company Number: US-PFIZER INC-2006140173

PATIENT
  Sex: Male
  Weight: 81.2 kg

DRUGS (10)
  1. CELEBREX [Suspect]
     Indication: PAIN IN EXTREMITY
     Route: 048
     Dates: start: 19980101
  2. CELEBREX [Suspect]
  3. VIOXX [Suspect]
     Indication: PAIN IN EXTREMITY
     Dates: start: 20001101
  4. VIOXX [Suspect]
  5. ACETYLSALICYLIC ACID SRT [Concomitant]
  6. LOTREL [Concomitant]
     Indication: HYPERTENSION
  7. MINOXIDIL [Concomitant]
  8. TOPROL-XL [Concomitant]
     Indication: HYPERTENSION
  9. AVALIDE [Concomitant]
     Indication: HYPERTENSION
  10. HYDROCHLOROTHIAZIDE [Concomitant]

REACTIONS (4)
  - ANXIETY [None]
  - CEREBROVASCULAR ACCIDENT [None]
  - DEPRESSION [None]
  - PAIN IN EXTREMITY [None]
